FAERS Safety Report 17171508 (Version 1)
Quarter: 2019Q4

REPORT INFORMATION
  Report Type: Spontaneous
  Country: US (occurrence: US)
  Receive Date: 20191218
  Receipt Date: 20191218
  Transmission Date: 20200122
  Serious: Yes (Hospitalization, Disabling)
  Sender: FDA-Public Use
  Company Number: US-JNJFOC-20191217202

PATIENT
  Age: 52 Year
  Sex: Male

DRUGS (1)
  1. INVOKANA [Suspect]
     Active Substance: CANAGLIFLOZIN
     Indication: PRODUCT USED FOR UNKNOWN INDICATION
     Route: 048

REACTIONS (5)
  - Neuropathic arthropathy [Unknown]
  - Skin ulcer [Unknown]
  - Lower limb fracture [Unknown]
  - Osteomyelitis chronic [Unknown]
  - Leg amputation [Unknown]

NARRATIVE: CASE EVENT DATE: 201708
